FAERS Safety Report 9386005 (Version 1)
Quarter: 2013Q3

REPORT INFORMATION
  Report Type: Spontaneous
  Country: FR (occurrence: FR)
  Receive Date: 20130705
  Receipt Date: 20130705
  Transmission Date: 20140515
  Serious: Yes (Other)
  Sender: FDA-Public Use
  Company Number: FR-BAXTER-2013BAX025345

PATIENT
  Age: 59 Year
  Sex: Female

DRUGS (5)
  1. ENDOXAN 2000 MG, LYOPHILISAT POUR SOLUTION INJECTABLE [Suspect]
     Indication: OVARIAN CANCER
     Route: 065
  2. PACLITAXEL [Suspect]
     Indication: OVARIAN CANCER
  3. CARBOPLATIN [Suspect]
     Indication: OVARIAN CANCER
  4. BEVACIZUMAB [Suspect]
     Indication: OVARIAN CANCER
  5. DOXORUBICIN [Suspect]
     Indication: OVARIAN CANCER

REACTIONS (3)
  - Cardiac failure acute [Not Recovered/Not Resolved]
  - Renal failure acute [Recovered/Resolved]
  - Toxicity to various agents [Unknown]
